FAERS Safety Report 9765393 (Version 1)
Quarter: 2013Q4

REPORT INFORMATION
  Report Type: Spontaneous
  Country: US (occurrence: US)
  Receive Date: 20131217
  Receipt Date: 20131217
  Transmission Date: 20140711
  Serious: No
  Sender: FDA-Public Use
  Company Number: US-BIOGENIDEC-2013BI110111

PATIENT
  Age: 70 Year
  Sex: Female

DRUGS (15)
  1. TECFIDERA [Suspect]
     Indication: MULTIPLE SCLEROSIS
     Route: 048
     Dates: start: 201308
  2. CYMBALTA [Concomitant]
  3. BONIVA [Concomitant]
  4. CENTRUM SILVER [Concomitant]
  5. LYRICA [Concomitant]
  6. BACLOFEN [Concomitant]
  7. NALTREXONE [Concomitant]
  8. TOPROL XL [Concomitant]
  9. CRESTOR [Concomitant]
  10. MIRALAX POWDER [Concomitant]
  11. LUNESTA [Concomitant]
  12. EQL OMEGA 3 FISH OIL [Concomitant]
  13. COLACE [Concomitant]
  14. OXYCODONE HCL [Concomitant]
  15. VITAMIN D3 [Concomitant]

REACTIONS (2)
  - Nasopharyngitis [Recovered/Resolved]
  - Abdominal pain [Recovered/Resolved]
